FAERS Safety Report 9146897 (Version 2)
Quarter: 2013Q1

REPORT INFORMATION
  Report Type: Spontaneous
  Country: US (occurrence: US)
  Receive Date: 20130307
  Receipt Date: 20130325
  Transmission Date: 20140127
  Serious: Yes (Other)
  Sender: FDA-Public Use
  Company Number: US-ROCHE-1197506

PATIENT
  Sex: Female

DRUGS (6)
  1. PERJETA [Suspect]
     Indication: BREAST CANCER METASTATIC
     Route: 042
     Dates: start: 20121228, end: 20130125
  2. HERCEPTIN [Suspect]
     Indication: BREAST CANCER METASTATIC
     Dosage: LOADING DOSE
     Route: 042
     Dates: start: 20121228
  3. HERCEPTIN [Suspect]
     Route: 042
     Dates: end: 20130125
  4. ABRAXANE [Concomitant]
     Route: 065
     Dates: start: 20120924, end: 20130125
  5. CAPECITABINE [Concomitant]
     Route: 065
     Dates: start: 20100817, end: 20101220
  6. LAPATINIB [Concomitant]
     Route: 065
     Dates: start: 20100817, end: 20101220

REACTIONS (4)
  - Hypotension [Recovered/Resolved]
  - Infusion related reaction [Unknown]
  - Nausea [Recovered/Resolved]
  - Faecal incontinence [Recovered/Resolved]
